FAERS Safety Report 5360614-1 (Version None)
Quarter: 2007Q2

REPORT INFORMATION
  Report Type: 
  Country: None (occurrence: None)
  Receive Date: 20070530
  Receipt Date: 20070327
  Transmission Date: 20071010
  Serious: No
  Sender: FDA-Public Use
  Company Number: 2007PV032502

PATIENT
  Age: 42 Year
  Sex: Female

DRUGS (4)
  1. BYETTA [Suspect]
     Dosage: 10 MCG; BID; SC, 5 MCG;BID; SC
     Route: 058
     Dates: start: 20070201, end: 20070323
  2. BYETTA [Suspect]
     Dosage: 10 MCG; BID; SC, 5 MCG;BID; SC
     Route: 058
     Dates: start: 20070324
  3. ASPIRIN [Concomitant]
  4. FISH OIL [Concomitant]

REACTIONS (4)
  - BLOOD GLUCOSE INCREASED [None]
  - DECREASED APPETITE [None]
  - INJECTION SITE BRUISING [None]
  - INJECTION SITE PAIN [None]
